FAERS Safety Report 6873912-7 (Version None)
Quarter: 2010Q3

REPORT INFORMATION
  Report Type: 
  Country: None (occurrence: None)
  Receive Date: 20100723
  Receipt Date: 20090504
  Transmission Date: 20110219
  Serious: No
  Sender: FDA-Public Use
  Company Number: US-PFIZER INC-2009173124

PATIENT
  Sex: Male
  Weight: 120.2 kg

DRUGS (2)
  1. CHANTIX [Suspect]
     Dosage: UNK
  2. VITAMINS [Concomitant]

REACTIONS (2)
  - ARTHRALGIA [None]
  - HEADACHE [None]
